FAERS Safety Report 23115294 (Version 1)
Quarter: 2023Q4

REPORT INFORMATION
  Report Type: Spontaneous
  Country: CA (occurrence: CA)
  Receive Date: 20231027
  Receipt Date: 20231027
  Transmission Date: 20240110
  Serious: Yes (Hospitalization, Other)
  Sender: FDA-Public Use
  Company Number: CA-MYLANLABS-2023M1112943

PATIENT
  Age: 82 Year
  Sex: Female
  Weight: 26 kg

DRUGS (1)
  1. TRASTUZUMAB [Suspect]
     Active Substance: TRASTUZUMAB
     Indication: Breast cancer metastatic
     Dosage: 310 MILLIGRAM, Q3W(1 EVERY 3 WEEKS)
     Route: 042

REACTIONS (5)
  - Neoplasm [Unknown]
  - Gastrointestinal haemorrhage [Unknown]
  - Oesophageal ulcer [Unknown]
  - Anaemia [Unknown]
  - Off label use [Unknown]
